FAERS Safety Report 24921383 (Version 1)
Quarter: 2025Q1

REPORT INFORMATION
  Report Type: Spontaneous
  Country: IR (occurrence: IR)
  Receive Date: 20250204
  Receipt Date: 20250204
  Transmission Date: 20250408
  Serious: Yes (Death, Life-Threatening, Hospitalization)
  Sender: KEDRION
  Company Number: IR-KEDRION-009897

PATIENT
  Age: 24 Year
  Sex: Female

DRUGS (9)
  1. RHOGAM [Suspect]
     Active Substance: HUMAN RHO(D) IMMUNE GLOBULIN
     Indication: Product used for unknown indication
     Route: 030
  2. PYRIDOSTIGMINE [Concomitant]
     Active Substance: PYRIDOSTIGMINE
     Indication: Myasthenia gravis
     Route: 065
  3. CYCLOPHOSPHAMIDE [Concomitant]
     Active Substance: CYCLOPHOSPHAMIDE
     Indication: Pulmonary alveolar haemorrhage
     Route: 065
  4. VORICONAZOLE [Concomitant]
     Active Substance: VORICONAZOLE
     Indication: Antifungal treatment
     Dosage: 6 MG/KG INTRAVENOUS (IV) Q12HR FOR FIRST 24H, THEN 4 MG/KG IV Q12HR
     Route: 042
  5. VORICONAZOLE [Concomitant]
     Active Substance: VORICONAZOLE
     Indication: Antifungal treatment
     Dosage: 6 MG/KG INTRAVENOUS (IV) Q12HR FOR FIRST 24H, THEN 4 MG/KG IV Q12HR
     Route: 042
  6. COLISTIN [Concomitant]
     Active Substance: COLISTIN
     Indication: Antibiotic therapy
     Dosage: 4 MG/KG/DAY DIVIDED Q6H IV
     Route: 042
  7. MEROPENEM [Concomitant]
     Active Substance: MEROPENEM
     Indication: Antibiotic therapy
     Route: 065
  8. HUMAN IMMUNOGLOBULIN G [Concomitant]
     Active Substance: HUMAN IMMUNOGLOBULIN G
     Indication: Pulmonary alveolar haemorrhage
     Dosage: INTRAVENOUS IMMUNOGLOBULIN (IVIG) 25 G/DAY WAS PRESCRIBED FOR THE NEXT FIVE CONSECUTIVE DAY
     Route: 042
  9. HUMAN IMMUNOGLOBULIN G [Concomitant]
     Active Substance: HUMAN IMMUNOGLOBULIN G
     Indication: Pulmonary alveolar haemorrhage
     Dosage: SECOND PHASE OF IVIG TREATMENT
     Route: 042

REACTIONS (2)
  - Systemic lupus erythematosus [Fatal]
  - Pulmonary alveolar haemorrhage [Unknown]
